FAERS Safety Report 5928938-4 (Version None)
Quarter: 2008Q3

REPORT INFORMATION
  Report Type: 
  Country: None (occurrence: None)
  Receive Date: 20080926
  Receipt Date: 20080319
  Transmission Date: 20090109
  Serious: Yes (Hospitalization)
  Sender: FDA-Public Use
  Company Number: 554335

PATIENT
  Age: 50 Year
  Sex: Male
  Weight: 103 kg

DRUGS (4)
  1. DEMADEX [Suspect]
     Indication: OEDEMA
     Dosage: 80 MG ORAL
     Route: 048
     Dates: start: 20070410, end: 20070501
  2. ALDACTONE [Suspect]
     Indication: OEDEMA
     Dosage: 25 MG ORAL
     Route: 048
     Dates: start: 20070408
  3. BLINDED INVESTIGATIONAL DRUG (BLINDED INVESTIGATIONAL DRUG) [Suspect]
     Indication: CARDIAC FAILURE CHRONIC
     Dosage: ORAL
     Route: 048
     Dates: start: 20070404, end: 20070501
  4. AVAPRO [Suspect]
     Indication: CARDIAC FAILURE CONGESTIVE
     Dosage: 37.5 MG ORAL
     Route: 048
     Dates: start: 20070419, end: 20070430

REACTIONS (1)
  - DEHYDRATION [None]
